FAERS Safety Report 23221739 (Version 2)
Quarter: 2023Q4

REPORT INFORMATION
  Report Type: Spontaneous
  Country: SE (occurrence: None)
  Receive Date: 20231123
  Receipt Date: 20231127
  Transmission Date: 20240110
  Serious: Yes (Other)
  Sender: FDA-Public Use
  Company Number: SE-ROCHE-3458644

PATIENT
  Age: 66 Year
  Sex: Female

DRUGS (1)
  1. HERCEPTIN [Suspect]
     Active Substance: TRASTUZUMAB
     Indication: Breast cancer
     Route: 065

REACTIONS (5)
  - Infusion related reaction [Unknown]
  - Blood pressure decreased [Unknown]
  - Dyspnoea [Unknown]
  - Pain [Unknown]
  - Chest discomfort [Unknown]
